FAERS Safety Report 15880485 (Version 1)
Quarter: 2019Q1

REPORT INFORMATION
  Report Type: Spontaneous
  Country: US (occurrence: US)
  Receive Date: 20190128
  Receipt Date: 20190128
  Transmission Date: 20190417
  Serious: Yes (Hospitalization)
  Sender: FDA-Public Use
  Company Number: None

PATIENT
  Age: 48 Year
  Sex: Male
  Weight: 147.15 kg

DRUGS (1)
  1. CREST PRO-HEALTH (CETYLPYRIDINIUM CHLORIDE) [Suspect]
     Active Substance: CETYLPYRIDINIUM CHLORIDE
     Indication: DENTAL DISORDER PROPHYLAXIS
     Dosage: ?          QUANTITY:1 SPOONFUL;?
     Route: 048
     Dates: start: 20190123, end: 20190125

REACTIONS (3)
  - Toothache [None]
  - Suspected product contamination [None]
  - Dizziness [None]

NARRATIVE: CASE EVENT DATE: 20190123
